FAERS Safety Report 23513001 (Version 1)
Quarter: 2024Q1

REPORT INFORMATION
  Report Type: Report from Study
  Country: DE (occurrence: DE)
  Receive Date: 20240212
  Receipt Date: 20240212
  Transmission Date: 20240409
  Serious: Yes (Death)
  Sender: FDA-Public Use
  Company Number: DE-JNJFOC-20240223343

PATIENT
  Age: 69 Year
  Sex: Female

DRUGS (1)
  1. DARATUMUMAB [Suspect]
     Active Substance: DARATUMUMAB
     Indication: Amyloidosis
     Route: 065
     Dates: start: 20230613, end: 20230617

REACTIONS (2)
  - Cardiogenic shock [Fatal]
  - Off label use [Unknown]
